FAERS Safety Report 5233121-4 (Version None)
Quarter: 2007Q1

REPORT INFORMATION
  Report Type: 
  Country: None (occurrence: None)
  Receive Date: 20061204
  Receipt Date: 20060831
  Transmission Date: 20070707
  Serious: No
  Sender: FDA-Public Use
  Company Number: 2006-BP-04486BP

PATIENT
  Age: 60 Year
  Sex: Female

DRUGS (21)
  1. SPIRIVA [Suspect]
     Indication: CHRONIC OBSTRUCTIVE PULMONARY DISEASE
     Dosage: 18 MCG (18 MCG,1 IN 1 D), IH
     Route: 055
     Dates: start: 20051001
  2. SPIRIVA [Suspect]
  3. ALBUTEROL NEBULIZER (SALBUTAMOL) [Concomitant]
  4. COMBIVENT (COMBIVENT /01261001/) [Concomitant]
  5. UNIPHYL [Concomitant]
  6. VOLMAX [Concomitant]
  7. XANAX [Concomitant]
  8. LORTAB [Concomitant]
  9. WARFARIN SODIUM [Concomitant]
  10. CARAFATE [Concomitant]
  11. REGLAN [Concomitant]
  12. BONIVA (IBANDRONATE SODIUM) [Concomitant]
  13. TYLENOL [Concomitant]
  14. ASPIRIN [Concomitant]
  15. VITAMIN B6 [Concomitant]
  16. VITAMIN D [Concomitant]
  17. NORVASC [Concomitant]
  18. ZOLOFT [Concomitant]
  19. ATENOLOL [Concomitant]
  20. CLONIDINE [Concomitant]
  21. FOLIC ACID [Concomitant]

REACTIONS (3)
  - DRUG INEFFECTIVE [None]
  - DYSGEUSIA [None]
  - DYSPNOEA [None]
